FAERS Safety Report 8919515 (Version 2)
Quarter: 2012Q4

REPORT INFORMATION
  Report Type: 
  Country: US (occurrence: US)
  Receive Date: 20121121
  Receipt Date: 20121226
  Transmission Date: 20130627
  Serious: Yes (Hospitalization)
  Sender: FDA-Public Use
  Company Number: US-BAYER-2012-121275

PATIENT
  Age: 26 Year
  Sex: Female

DRUGS (3)
  1. YAZ [Suspect]
     Dosage: UNK
     Dates: start: 200705, end: 20081129
  2. OXYCODONE/APAP [Concomitant]
     Dosage: 7.5 mg, UNK
     Route: 048
     Dates: start: 20081005
  3. OXYCODONE/APAP [Concomitant]
     Dosage: 500 mg, UNK
     Route: 048

REACTIONS (9)
  - Deep vein thrombosis [Recovered/Resolved]
  - Pulmonary embolism [None]
  - Deep vein thrombosis [Recovered/Resolved]
  - Injury [None]
  - Pain [None]
  - Emotional distress [None]
  - Anxiety [None]
  - General physical health deterioration [None]
  - Pain [None]
